FAERS Safety Report 8472813-0 (Version None)
Quarter: 2012Q2

REPORT INFORMATION
  Report Type: 
  Country: None (occurrence: None)
  Receive Date: 20120627
  Receipt Date: 20120620
  Transmission Date: 20120825
  Serious: Yes (Other)
  Sender: FDA-Public Use
  Company Number: US-PFIZER INC-2012149709

PATIENT
  Sex: Male

DRUGS (2)
  1. SIROLIMUS [Suspect]
     Dosage: UNK
  2. TORISEL [Suspect]
     Dosage: UNK

REACTIONS (2)
  - IMMUNOSUPPRESSION [None]
  - DRUG LEVEL INCREASED [None]
